FAERS Safety Report 9543073 (Version 2)
Quarter: 2013Q4

REPORT INFORMATION
  Report Type: Spontaneous
  Country: US (occurrence: US)
  Receive Date: 20130923
  Receipt Date: 20131009
  Transmission Date: 20140711
  Serious: Yes (Other)
  Sender: FDA-Public Use
  Company Number: US-PFIZER INC-2013271373

PATIENT
  Age: 36 Year
  Sex: Female
  Weight: 54.42 kg

DRUGS (1)
  1. ADVIL GELCAPS [Suspect]
     Indication: BACK PAIN
     Dosage: 600 MG, 3X/DAY
     Dates: start: 20130916, end: 20130917

REACTIONS (3)
  - Overdose [Recovered/Resolved]
  - Eye haemorrhage [Not Recovered/Not Resolved]
  - Urticaria [Recovering/Resolving]
